FAERS Safety Report 9312967 (Version 1)
Quarter: 2013Q2

REPORT INFORMATION
  Report Type: Spontaneous
  Country: US (occurrence: US)
  Receive Date: 20130528
  Receipt Date: 20130528
  Transmission Date: 20140414
  Serious: No
  Sender: FDA-Public Use
  Company Number: US-ABBOTT-13P-163-1068103-00

PATIENT
  Age: 58 Year
  Sex: Male
  Weight: 93.07 kg

DRUGS (14)
  1. ANDROGEL [Suspect]
     Indication: BLOOD TESTOSTERONE DECREASED
     Dosage: 4 PUMPS
     Route: 061
     Dates: start: 201007
  2. ASPIRIN [Concomitant]
     Indication: PRODUCT USED FOR UNKNOWN INDICATION
  3. ATENOLOL [Concomitant]
     Indication: HYPERTENSION
  4. RAPAFLO [Concomitant]
     Indication: BENIGN PROSTATIC HYPERPLASIA
  5. SINGULAIR [Concomitant]
     Indication: SEASONAL ALLERGY
  6. FEXOFENADINE [Concomitant]
     Indication: SEASONAL ALLERGY
  7. LAMOTRIGINE [Concomitant]
     Indication: BIPOLAR DISORDER
  8. CIALIS [Concomitant]
     Indication: ERECTILE DYSFUNCTION
  9. GLIMEPIRIDE [Concomitant]
     Indication: DIABETES MELLITUS
  10. JANUMET [Concomitant]
     Indication: DIABETES MELLITUS
  11. VITAMIN D [Concomitant]
     Indication: SUPPLEMENTATION THERAPY
  12. MULTIVITAMIN [Concomitant]
     Indication: PRODUCT USED FOR UNKNOWN INDICATION
  13. ACETYL L-CARNITINE [Concomitant]
     Indication: SUPPLEMENTATION THERAPY
  14. ALPHA LIPOIC ACID [Concomitant]
     Indication: SUPPLEMENTATION THERAPY

REACTIONS (1)
  - Blood testosterone decreased [Not Recovered/Not Resolved]
